FAERS Safety Report 4798207-7 (Version None)
Quarter: 2005Q4

REPORT INFORMATION
  Report Type: 
  Country: None (occurrence: None)
  Receive Date: 20051011
  Receipt Date: 20051004
  Transmission Date: 20060501
  Serious: Yes (Death)
  Sender: FDA-Public Use
  Company Number: 163-20785-05090097

PATIENT
  Age: 67 Year
  Sex: Female

DRUGS (3)
  1. THALOMID [Suspect]
     Indication: MYELODYSPLASTIC SYNDROME
     Dosage: 100 MG, QHS, ORAL
     Route: 048
     Dates: start: 20050624, end: 20050820
  2. HYDROCHLOROTHIAZIDE [Concomitant]
  3. ARIMIDEX [Concomitant]

REACTIONS (5)
  - ACUTE LEUKAEMIA [None]
  - BONE MARROW TRANSPLANT [None]
  - CEREBROVASCULAR ACCIDENT [None]
  - DISEASE PROGRESSION [None]
  - MYELODYSPLASTIC SYNDROME [None]
